FAERS Safety Report 4841608-9 (Version None)
Quarter: 2005Q4

REPORT INFORMATION
  Report Type: 
  Country: None (occurrence: None)
  Receive Date: 20051130
  Receipt Date: 20050906
  Transmission Date: 20060501
  Serious: No
  Sender: FDA-Public Use
  Company Number: US-GLAXOSMITHKLINE-A0573137A

PATIENT
  Age: 42 Year
  Sex: Male

DRUGS (4)
  1. WELLBUTRIN XL [Suspect]
     Indication: DEPRESSION
     Dosage: 150MGML PER DAY
     Route: 048
     Dates: start: 20050806
  2. BENICAR [Concomitant]
  3. NAPROXEN [Concomitant]
  4. PROMEDOL [Concomitant]

REACTIONS (5)
  - CHEST PAIN [None]
  - DRY MOUTH [None]
  - HEADACHE [None]
  - HYPERTENSION [None]
  - PHARYNGOLARYNGEAL PAIN [None]
